FAERS Safety Report 6057545-0 (Version None)
Quarter: 2009Q1

REPORT INFORMATION
  Report Type: 
  Country: None (occurrence: None)
  Receive Date: 20090127
  Receipt Date: 20090127
  Transmission Date: 20090719
  Serious: Yes (Life-Threatening)
  Sender: FDA-Public Use
  Company Number: None

PATIENT
  Sex: Female
  Weight: 6.3 kg

DRUGS (2)
  1. PENTAM [Suspect]
     Indication: LUNG DISORDER
     Dosage: 25 MG ONCE IV DRIP
     Route: 041
     Dates: end: 20090115
  2. PENTAM [Suspect]
     Indication: PROPHYLAXIS
     Dosage: 25 MG ONCE IV DRIP
     Route: 041
     Dates: end: 20090115

REACTIONS (6)
  - APNOEA [None]
  - CYANOSIS [None]
  - NO REACTION ON PREVIOUS EXPOSURE TO DRUG [None]
  - PRODUCT QUALITY ISSUE [None]
  - SEDATION [None]
  - SOMNOLENCE [None]
